FAERS Safety Report 9665999 (Version 1)
Quarter: 2013Q4

REPORT INFORMATION
  Report Type: Spontaneous
  Country: US (occurrence: None)
  Receive Date: 20131031
  Receipt Date: 20131031
  Transmission Date: 20140711
  Serious: Yes (Hospitalization)
  Sender: FDA-Public Use
  Company Number: 1975705

PATIENT
  Age: 14 Month
  Sex: Male

DRUGS (1)
  1. CARBOPLATIN [Suspect]
     Indication: RETINOBLASTOMA

REACTIONS (5)
  - Ecchymosis [None]
  - Fibrosis [None]
  - Scar [None]
  - Fat necrosis [None]
  - Eye disorder [None]
